FAERS Safety Report 11984278 (Version 1)
Quarter: 2016Q1

REPORT INFORMATION
  Report Type: Spontaneous
  Country: US (occurrence: US)
  Receive Date: 20160201
  Receipt Date: 20160201
  Transmission Date: 20160526
  Serious: Yes (Death)
  Sender: FDA-Public Use
  Company Number: US-FRI-1000082401

PATIENT
  Sex: Female

DRUGS (7)
  1. BUPROPION. [Concomitant]
     Active Substance: BUPROPION
  2. TEGRETOL [Concomitant]
     Active Substance: CARBAMAZEPINE
  3. AMOXICILLIN. [Concomitant]
     Active Substance: AMOXICILLIN
  4. SAPHRIS [Suspect]
     Active Substance: ASENAPINE MALEATE
     Indication: INSOMNIA
     Dosage: 20MG
     Route: 060
  5. LYRICA [Concomitant]
     Active Substance: PREGABALIN
  6. FLURAZEPAM [Concomitant]
     Active Substance: FLURAZEPAM\FLURAZEPAM HYDROCHLORIDE
  7. CITALOPRAM [Concomitant]
     Active Substance: CITALOPRAM HYDROBROMIDE

REACTIONS (2)
  - Off label use [Unknown]
  - Cardiac disorder [Fatal]
